FAERS Safety Report 16001700 (Version 1)
Quarter: 2019Q1

REPORT INFORMATION
  Report Type: Spontaneous
  Country: US (occurrence: US)
  Receive Date: 20190225
  Receipt Date: 20190225
  Transmission Date: 20190418
  Serious: No
  Sender: FDA-Public Use
  Company Number: US-PFIZER INC-2019073128

PATIENT
  Age: 26 Year
  Sex: Female
  Weight: 52.15 kg

DRUGS (1)
  1. EUCRISA [Suspect]
     Active Substance: CRISABOROLE
     Indication: ECZEMA
     Dosage: UNK, 2X/DAY (APPLY THIN LAYER ON AFFECTED AREAS)
     Dates: start: 20190201, end: 20190214

REACTIONS (13)
  - Formication [Unknown]
  - Application site paraesthesia [Not Recovered/Not Resolved]
  - Application site inflammation [Unknown]
  - Dry skin [Unknown]
  - Urticaria [Not Recovered/Not Resolved]
  - Application site pain [Not Recovered/Not Resolved]
  - Pain [Unknown]
  - Eye disorder [Unknown]
  - Application site pruritus [Not Recovered/Not Resolved]
  - Sensory disturbance [Unknown]
  - Application site swelling [Unknown]
  - Application site discolouration [Unknown]
  - Eye swelling [Unknown]

NARRATIVE: CASE EVENT DATE: 201902
